FAERS Safety Report 14872441 (Version 4)
Quarter: 2018Q2

REPORT INFORMATION
  Report Type: Spontaneous
  Country: US (occurrence: US)
  Receive Date: 20180510
  Receipt Date: 20180615
  Transmission Date: 20180711
  Serious: Yes (Hospitalization, Disabling)
  Sender: FDA-Public Use
  Company Number: US-CELGENEUS-USA-20180502432

PATIENT
  Age: 5 Year
  Sex: Female
  Weight: 24.2 kg

DRUGS (34)
  1. LEVOFLOXACIN. [Concomitant]
     Active Substance: LEVOFLOXACIN
     Indication: NASOGASTRIC OUTPUT NORMAL
     Dosage: 440 MILLIGRAM
     Route: 065
     Dates: start: 20171121
  2. OXYCODONE [Concomitant]
     Active Substance: OXYCODONE
     Indication: PAIN
  3. SULFAMETHOXAZOLE [Concomitant]
     Active Substance: SULFAMETHOXAZOLE
     Indication: NASOGASTRIC OUTPUT NORMAL
     Dosage: 120 MILLIGRAM
     Route: 065
     Dates: start: 20171108
  4. SULFAMETHOXAZOLE [Concomitant]
     Active Substance: SULFAMETHOXAZOLE
     Indication: PNEUMOCYSTIS JIROVECII PNEUMONIA
  5. LORAZEPAM. [Concomitant]
     Active Substance: LORAZEPAM
     Indication: NASOGASTRIC OUTPUT NORMAL
     Dosage: 2.4 MILLIGRAM
     Route: 065
     Dates: start: 20171108
  6. CHOLECALCIFEROL [Concomitant]
     Active Substance: CHOLECALCIFEROL
     Indication: NASOGASTRIC OUTPUT NORMAL
     Dosage: 2000 IU (INTERNATIONAL UNIT)
     Route: 065
     Dates: start: 20171108
  7. OXYCODONE [Concomitant]
     Active Substance: OXYCODONE
     Indication: NASOGASTRIC OUTPUT NORMAL
     Dosage: 2 MILLIGRAM
     Route: 065
     Dates: start: 20171110
  8. OLANZAPINE. [Concomitant]
     Active Substance: OLANZAPINE
     Indication: NASOGASTRIC OUTPUT NORMAL
     Dosage: 2.5 MILLIGRAM
     Route: 065
     Dates: start: 20180315
  9. OLANZAPINE. [Concomitant]
     Active Substance: OLANZAPINE
     Indication: GASTROINTESTINAL DISORDER
  10. VIDAZA [Suspect]
     Active Substance: AZACITIDINE
     Dosage: 75 MILLIGRAM/SQ. METER
     Route: 042
     Dates: start: 20180112
  11. VENETOCLAX. [Suspect]
     Active Substance: VENETOCLAX
     Indication: REFRACTORY CANCER
     Dosage: 80 MILLIGRAM
     Route: 048
     Dates: start: 20171114, end: 20171114
  12. VENETOCLAX. [Suspect]
     Active Substance: VENETOCLAX
     Indication: NASOGASTRIC OUTPUT NORMAL
     Dosage: 170 MILLIGRAM
     Route: 048
     Dates: start: 20171115, end: 20171115
  13. ALLOPURINOL. [Concomitant]
     Active Substance: ALLOPURINOL
     Dosage: 300 MILLIGRAM
     Route: 065
     Dates: start: 20180112, end: 20180113
  14. OSELTAMIVIR [Concomitant]
     Active Substance: OSELTAMIVIR
     Indication: NASOGASTRIC OUTPUT NORMAL
     Dosage: 108 MILLIGRAM
     Route: 065
     Dates: start: 20180330, end: 20180408
  15. VENETOCLAX. [Suspect]
     Active Substance: VENETOCLAX
     Dosage: 170 MILLIGRAM
     Route: 048
     Dates: start: 20171207
  16. ENALAPRIL [Concomitant]
     Active Substance: ENALAPRIL
     Indication: NASOGASTRIC OUTPUT NORMAL
     Dosage: 2 MILLIGRAM
     Route: 065
     Dates: start: 20171106
  17. ENALAPRIL [Concomitant]
     Active Substance: ENALAPRIL
     Indication: CARDIAC DISORDER
  18. ACYCLOVIR. [Concomitant]
     Active Substance: ACYCLOVIR
     Indication: VIRAL INFECTION
  19. GRANISETRON [Concomitant]
     Active Substance: GRANISETRON
     Indication: GASTROINTESTINAL DISORDER
  20. OMEPRAZOLE. [Concomitant]
     Active Substance: OMEPRAZOLE
     Indication: NASOGASTRIC OUTPUT NORMAL
     Dosage: 20 MILLIGRAM
     Route: 065
     Dates: start: 20171108
  21. OMEPRAZOLE. [Concomitant]
     Active Substance: OMEPRAZOLE
     Indication: GASTROOESOPHAGEAL REFLUX DISEASE
  22. MAGNESIUM CARBONATE [Concomitant]
     Active Substance: MAGNESIUM CARBONATE
     Indication: MINERAL SUPPLEMENTATION
  23. CHOLECALCIFEROL [Concomitant]
     Active Substance: CHOLECALCIFEROL
     Indication: VITAMIN SUPPLEMENTATION
  24. ALLOPURINOL. [Concomitant]
     Active Substance: ALLOPURINOL
     Indication: TUMOUR LYSIS SYNDROME
     Dosage: 300 MILLIGRAM
     Route: 065
     Dates: start: 20171207, end: 20171208
  25. ALLOPURINOL. [Concomitant]
     Active Substance: ALLOPURINOL
     Dosage: 300 MILLIGRAM
     Route: 065
     Dates: start: 20180316, end: 20180321
  26. VIDAZA [Suspect]
     Active Substance: AZACITIDINE
     Indication: REFRACTORY CANCER
     Route: 042
     Dates: start: 20170528, end: 20170603
  27. GRANISETRON [Concomitant]
     Active Substance: GRANISETRON
     Indication: NASOGASTRIC OUTPUT NORMAL
     Dosage: 2 MILLIGRAM
     Route: 065
     Dates: start: 20171108
  28. MAGNESIUM CARBONATE [Concomitant]
     Active Substance: MAGNESIUM CARBONATE
     Indication: NASOGASTRIC OUTPUT NORMAL
     Dosage: 54 MILLIGRAM
     Route: 065
     Dates: start: 20171108
  29. ALLOPURINOL. [Concomitant]
     Active Substance: ALLOPURINOL
     Indication: NASOGASTRIC OUTPUT NORMAL
     Dosage: 300 MILLIGRAM
     Route: 065
     Dates: start: 20171113, end: 20171117
  30. LORAZEPAM. [Concomitant]
     Active Substance: LORAZEPAM
     Indication: GASTROINTESTINAL DISORDER
  31. LEVOFLOXACIN. [Concomitant]
     Active Substance: LEVOFLOXACIN
     Indication: BACTERIAL INFECTION
  32. VENETOCLAX. [Suspect]
     Active Substance: VENETOCLAX
     Dosage: 350 MILLIGRAM
     Route: 048
     Dates: start: 20171116, end: 20171206
  33. ACYCLOVIR. [Concomitant]
     Active Substance: ACYCLOVIR
     Indication: NASOGASTRIC OUTPUT NORMAL
     Dosage: 1000 MILLIGRAM
     Route: 065
     Dates: start: 20171108
  34. OSELTAMIVIR [Concomitant]
     Active Substance: OSELTAMIVIR
     Indication: INFLUENZA

REACTIONS (2)
  - Febrile neutropenia [Recovered/Resolved]
  - Febrile neutropenia [Recovered/Resolved]

NARRATIVE: CASE EVENT DATE: 20180424
